FAERS Safety Report 21146850 (Version 1)
Quarter: 2022Q3

REPORT INFORMATION
  Report Type: Spontaneous
  Country: US (occurrence: None)
  Receive Date: 20220728
  Receipt Date: 20220728
  Transmission Date: 20221027
  Serious: Yes (Hospitalization)
  Sender: FDA-Public Use
  Company Number: None

PATIENT
  Age: 81 Year
  Sex: Male
  Weight: 223 kg

DRUGS (1)
  1. APIXABAN [Suspect]
     Active Substance: APIXABAN
     Indication: Atrial fibrillation
     Dates: start: 20161216

REACTIONS (3)
  - Gastrointestinal haemorrhage [None]
  - Oesophageal ulcer [None]
  - Gastric ulcer [None]

NARRATIVE: CASE EVENT DATE: 20210722
